FAERS Safety Report 9985509 (Version 2)
Quarter: 2015Q3

REPORT INFORMATION
  Report Type: Spontaneous
  Country: US (occurrence: US)
  Receive Date: 20140307
  Receipt Date: 20150727
  Transmission Date: 20151125
  Serious: No
  Sender: FDA-Public Use
  Company Number: US-GILEAD-2012-0063110

PATIENT
  Sex: Male

DRUGS (1)
  1. TRUVADA [Suspect]
     Active Substance: EMTRICITABINE\TENOFOVIR DISOPROXIL FUMARATE
     Indication: HIV INFECTION

REACTIONS (6)
  - Glucose tolerance impaired [Unknown]
  - Weight decreased [Unknown]
  - Fatigue [Unknown]
  - Sleep disorder [Unknown]
  - Vitamin B complex deficiency [Unknown]
  - Blood testosterone decreased [Unknown]
